FAERS Safety Report 11048337 (Version 1)
Quarter: 2015Q2

REPORT INFORMATION
  Report Type: Report from Study
  Country: EC (occurrence: EC)
  Receive Date: 20150420
  Receipt Date: 20150420
  Transmission Date: 20150821
  Serious: Yes (Hospitalization)
  Sender: FDA-Public Use
  Company Number: EC-ABBVIE-15P-047-1376890-00

PATIENT
  Age: 32 Year
  Sex: Female
  Weight: 54 kg

DRUGS (1)
  1. ZEMPLAR [Suspect]
     Active Substance: PARICALCITOL
     Indication: HYPERPARATHYROIDISM SECONDARY
     Dosage: INTERDAY
     Route: 042
     Dates: start: 201309, end: 20150320

REACTIONS (1)
  - Arteriovenous fistula operation [Recovering/Resolving]

NARRATIVE: CASE EVENT DATE: 20150406
